FAERS Safety Report 15750142 (Version 1)
Quarter: 2018Q4

REPORT INFORMATION
  Report Type: Report from Study
  Country: ES (occurrence: ES)
  Receive Date: 20181221
  Receipt Date: 20181221
  Transmission Date: 20190205
  Serious: Yes (Death)
  Sender: FDA-Public Use
  Company Number: ES-PFIZER INC-2018521728

PATIENT
  Age: 73 Year
  Sex: Male

DRUGS (8)
  1. OMEPRAZOL [Concomitant]
     Active Substance: OMEPRAZOLE
     Dosage: 20 MG DAY
     Route: 048
     Dates: start: 20180109
  2. LORAZEPAM. [Concomitant]
     Active Substance: LORAZEPAM
     Dosage: 1 DF, 1X/DAY  (0-0-1)
     Route: 048
  3. SINTROM [Concomitant]
     Active Substance: ACENOCOUMAROL
     Dosage: AS PRESCRIBED
     Route: 048
     Dates: start: 20090427
  4. PREGABALIN. [Concomitant]
     Active Substance: PREGABALIN
     Dosage: 75 MG, 3X/DAY (1-1-1)
     Dates: start: 20180205
  5. FUROSEMIDE. [Concomitant]
     Active Substance: FUROSEMIDE
     Dosage: 40 MG, 3X/DAY (1-1-1) (40 MG/8 HOURS)
     Route: 048
     Dates: start: 20070424
  6. SPIRONOLACTONE. [Suspect]
     Active Substance: SPIRONOLACTONE
     Indication: CARDIAC FAILURE
     Dosage: 50 MG, 1X/DAY (50 MG/DAY)
     Route: 048
     Dates: start: 20081209, end: 20180223
  7. BISOPROLOL [Concomitant]
     Active Substance: BISOPROLOL
     Dosage: 2.5 MG (1/2-0-0)
     Route: 048
  8. DIGOXINA [Concomitant]
     Active Substance: DIGOXIN
     Dosage: 0.25 MG, 1X/DAY (1-0-0)
     Route: 048

REACTIONS (1)
  - Hyperkalaemia [Fatal]

NARRATIVE: CASE EVENT DATE: 20180224
